FAERS Safety Report 8018643-5 (Version None)
Quarter: 2012Q1

REPORT INFORMATION
  Report Type: 
  Country: None (occurrence: None)
  Receive Date: 20120103
  Receipt Date: 20111227
  Transmission Date: 20120608
  Serious: Yes (Death, Other)
  Sender: FDA-Public Use
  Company Number: US-PFIZER INC-2011299152

PATIENT
  Sex: Male

DRUGS (1)
  1. SUTENT [Suspect]
     Indication: RENAL CANCER
     Dosage: 50 MG, UNK
     Dates: start: 20111101, end: 20111121

REACTIONS (5)
  - INSOMNIA [None]
  - WEIGHT INCREASED [None]
  - EATING DISORDER [None]
  - DEPRESSION [None]
  - COMPLETED SUICIDE [None]
